FAERS Safety Report 15714439 (Version 1)
Quarter: 2018Q4

REPORT INFORMATION
  Report Type: Spontaneous
  Country: US (occurrence: US)
  Receive Date: 20181212
  Receipt Date: 20181212
  Transmission Date: 20190205
  Serious: No
  Sender: FDA-Public Use
  Company Number: US-SA-2018SA337332

PATIENT
  Age: 81 Year
  Sex: Male

DRUGS (1)
  1. DUPIXENT [Suspect]
     Active Substance: DUPILUMAB
     Indication: PEMPHIGOID
     Dosage: 300 MG, QW
     Dates: start: 20180918

REACTIONS (5)
  - Injection site discolouration [Unknown]
  - Injection site mass [Not Recovered/Not Resolved]
  - Product use issue [Unknown]
  - Lack of injection site rotation [Unknown]
  - Product use in unapproved indication [Unknown]
